FAERS Safety Report 4425249-3 (Version None)
Quarter: 2004Q3

REPORT INFORMATION
  Report Type: 
  Country: None (occurrence: None)
  Receive Date: 20040813
  Receipt Date: 20040722
  Transmission Date: 20050211
  Serious: Yes (Hospitalization, Other)
  Sender: FDA-Public Use
  Company Number: US-BRISTOL-MYERS SQUIBB COMPANY-12649695

PATIENT
  Age: 60 Year
  Sex: Male

DRUGS (15)
  1. ERBITUX [Suspect]
     Indication: COLORECTAL CANCER METASTATIC
     Dosage: BSA = 2.03.  400 MG/M2.
     Route: 042
     Dates: start: 20040720, end: 20040720
  2. BENADRYL [Concomitant]
     Indication: PREMEDICATION
     Route: 042
     Dates: start: 20040720, end: 20040720
  3. ALPRAZOLAM [Concomitant]
  4. ATENOLOL [Concomitant]
  5. CELEXA [Concomitant]
  6. FOSINOPRIL SODIUM [Concomitant]
  7. HYDROCHLOROTHIAZIDE [Concomitant]
  8. MULTI-VITAMIN [Concomitant]
  9. OXYCODONE HCL [Concomitant]
  10. OXYCONTIN [Concomitant]
  11. PERDIEM [Concomitant]
  12. TEMAZEPAM [Concomitant]
  13. TERAZOSIN HCL [Concomitant]
  14. TYLENOL [Concomitant]
  15. ZOCOR [Concomitant]

REACTIONS (1)
  - MENINGITIS ASEPTIC [None]
